FAERS Safety Report 24248030 (Version 1)
Quarter: 2024Q3

REPORT INFORMATION
  Report Type: Spontaneous
  Country: US (occurrence: None)
  Receive Date: 20240823
  Receipt Date: 20240823
  Transmission Date: 20241017
  Serious: No
  Sender: Public
  Company Number: None

PATIENT

DRUGS (1)
  1. GLIMEPIRIDE [Suspect]
     Active Substance: GLIMEPIRIDE

REACTIONS (8)
  - Abdominal distension [None]
  - Dyspnoea [None]
  - Underdose [None]
  - Hyperglycaemic hyperosmolar nonketotic syndrome [None]
  - Hyperkalaemia [None]
  - Exposure during pregnancy [None]
  - Product prescribing issue [None]
  - Product communication issue [None]
